FAERS Safety Report 23653815 (Version 2)
Quarter: 2024Q4

REPORT INFORMATION
  Report Type: Spontaneous
  Country: NO (occurrence: NO)
  Receive Date: 20240320
  Receipt Date: 20241220
  Transmission Date: 20250115
  Serious: Yes (Death, Other)
  Sender: MERCK
  Company Number: None

PATIENT
  Sex: Male

DRUGS (11)
  1. KEYTRUDA [Suspect]
     Active Substance: PEMBROLIZUMAB
     Indication: Non-small cell lung cancer stage IV
     Dosage: 200 MILLIGRAM, Q3W
     Route: 042
     Dates: start: 20220426, end: 20231206
  2. ACETAMINOPHEN [Concomitant]
     Active Substance: ACETAMINOPHEN
     Indication: Pain
     Dosage: 1 DOSAGE FORM, Q8H
  3. DIPYRIDAMOL SANDOZ [Concomitant]
     Indication: Cerebrovascular accident prophylaxis
  4. METOCLOPRAMIDE HYDROCHLORIDE [Concomitant]
     Active Substance: METOCLOPRAMIDE HYDROCHLORIDE
     Indication: Procedural nausea
     Dosage: 1 TABLET UP TO 3 TIMES A DAY
  5. FEXOFENADINE [Concomitant]
     Active Substance: FEXOFENADINE HYDROCHLORIDE
     Indication: Pruritus
     Dosage: 1 TABLET UP TO 2 TIMES A DAY
  6. POLYETHYLENE GLYCOL 3350\POTASSIUM CHLORIDE\SODIUM BICARBONATE\SODIUM [Concomitant]
     Active Substance: POLYETHYLENE GLYCOL 3350\POTASSIUM CHLORIDE\SODIUM BICARBONATE\SODIUM CHLORIDE
     Indication: Constipation
     Dosage: 1 DOSAGE FORM, Q12H
     Dates: start: 20240101
  7. SANDOZ-METOPROLOL [Concomitant]
     Indication: Hypertension
     Dosage: 1 DOSAGE FORM, QD
  8. CIPRALEX [Concomitant]
     Active Substance: ESCITALOPRAM OXALATE
     Dosage: 1 DOSAGE FORM, QD
  9. MIANSERIN [Concomitant]
     Active Substance: MIANSERIN
     Indication: Depression
     Dosage: 2 TABLETS IN THE EVENING
  10. PARACETA [Concomitant]
     Indication: Pain
     Dosage: NAUSEA POST RADIOTHERAPY
  11. FEXOFENADINE [Concomitant]
     Active Substance: FEXOFENADINE HYDROCHLORIDE
     Indication: Pruritus
     Dosage: 1 TABLET UP TO 2 TIMES A DAY

REACTIONS (17)
  - Ascites [Fatal]
  - Neurological symptom [Fatal]
  - Rectal haemorrhage [Fatal]
  - Serositis [Fatal]
  - Skin lesion inflammation [Fatal]
  - Diplopia [Fatal]
  - Pleural effusion [Fatal]
  - Atrial fibrillation [Fatal]
  - Immune-mediated adverse reaction [Fatal]
  - Pericardial effusion [Fatal]
  - Influenza like illness [Fatal]
  - Pyrexia [Fatal]
  - Cough [Fatal]
  - Abdominal pain upper [Fatal]
  - Rash [Fatal]
  - Intestinal haemorrhage [Fatal]
  - Nephritis [Fatal]

NARRATIVE: CASE EVENT DATE: 20230101
